FAERS Safety Report 4627826-3 (Version None)
Quarter: 2005Q2

REPORT INFORMATION
  Report Type: 
  Country: None (occurrence: None)
  Receive Date: 20050401
  Receipt Date: 20050323
  Transmission Date: 20051028
  Serious: Yes (Other)
  Sender: FDA-Public Use
  Company Number: 2004118158

PATIENT
  Weight: 1.5 kg

DRUGS (1)
  1. ALDACTONE [Suspect]
     Indication: ILL-DEFINED DISORDER
     Dosage: 50 MG (DAILY)

REACTIONS (5)
  - ACCIDENTAL OVERDOSE [None]
  - ACIDOSIS [None]
  - ELECTROLYTE IMBALANCE [None]
  - MEDICATION ERROR [None]
  - NEONATAL DISORDER [None]
